FAERS Safety Report 25516689 (Version 1)
Quarter: 2025Q3

REPORT INFORMATION
  Report Type: Spontaneous
  Country: EU (occurrence: EU)
  Receive Date: 20250704
  Receipt Date: 20250704
  Transmission Date: 20251020
  Serious: Yes (Hospitalization)
  Sender: BEIGENE
  Company Number: EU-BEIGENE-BGN-2025-010649

PATIENT
  Age: 77 Year

DRUGS (2)
  1. BRUKINSA [Suspect]
     Active Substance: ZANUBRUTINIB
     Indication: Chronic lymphocytic leukaemia
  2. BRUKINSA [Suspect]
     Active Substance: ZANUBRUTINIB
     Indication: B symptoms

REACTIONS (3)
  - Lung disorder [Recovering/Resolving]
  - Pulmonary necrosis [Recovering/Resolving]
  - Pulmonary tuberculosis [Recovering/Resolving]
